FAERS Safety Report 9217564 (Version 1)
Quarter: 2013Q2

REPORT INFORMATION
  Report Type: Spontaneous
  Country: JP (occurrence: JP)
  Receive Date: 20130408
  Receipt Date: 20130408
  Transmission Date: 20140414
  Serious: Yes (Other)
  Sender: FDA-Public Use
  Company Number: JP-BRISTOL-MYERS SQUIBB COMPANY-18742080

PATIENT
  Age: 65 Year
  Sex: Female

DRUGS (3)
  1. ERBITUX SOLN FOR INF 5MG/ML [Suspect]
     Indication: LIP AND/OR ORAL CAVITY CANCER
     Dosage: 14MAR-14MAR13-ONG
     Route: 041
     Dates: start: 20130314
  2. CISPLATIN FOR INJ [Suspect]
     Indication: LIP AND/OR ORAL CAVITY CANCER
     Dosage: 07MAR-07MAR13-ONG
     Route: 041
     Dates: start: 20130307
  3. 5-FLUOROURACIL [Suspect]
     Indication: LIP AND/OR ORAL CAVITY CANCER
     Dosage: 07MAR-07MAR13-ONG
     Route: 041
     Dates: start: 20130307

REACTIONS (1)
  - Thrombosis in device [Recovering/Resolving]
